FAERS Safety Report 11714760 (Version 1)
Quarter: 2015Q4

REPORT INFORMATION
  Report Type: Spontaneous
  Country: US (occurrence: US)
  Receive Date: 20151109
  Receipt Date: 20151109
  Transmission Date: 20160304
  Serious: Yes (Other)
  Sender: FDA-Public Use
  Company Number: US-MYLANLABS-2015M1037276

PATIENT

DRUGS (2)
  1. SOTALOL. [Suspect]
     Active Substance: SOTALOL
     Dosage: 120 MG, UNK
     Dates: start: 201508, end: 20151016
  2. SOTALOL. [Suspect]
     Active Substance: SOTALOL
     Dosage: 80 MG, BID
     Dates: start: 20121211, end: 20150818

REACTIONS (2)
  - Atrial fibrillation [Unknown]
  - Drug effect decreased [Unknown]
